FAERS Safety Report 5818354-8 (Version None)
Quarter: 2008Q3

REPORT INFORMATION
  Report Type: 
  Country: None (occurrence: None)
  Receive Date: 20080716
  Receipt Date: 20080707
  Transmission Date: 20090109
  Serious: Yes (Other)
  Sender: FDA-Public Use
  Company Number: B0428637A

PATIENT
  Age: 52 Year
  Sex: Male

DRUGS (4)
  1. AVANDIA [Suspect]
     Indication: DIABETES MELLITUS
     Dosage: ORAL
     Route: 048
     Dates: start: 20050201
  2. LOSARTAN POTASSIUM [Concomitant]
  3. METFORMIN HYDROCHLORIDE [Concomitant]
  4. INSULIN [Concomitant]

REACTIONS (4)
  - DIABETIC EYE DISEASE [None]
  - MACULAR OEDEMA [None]
  - MACULOPATHY [None]
  - VISUAL IMPAIRMENT [None]
